FAERS Safety Report 7121102-5 (Version None)
Quarter: 2010Q4

REPORT INFORMATION
  Report Type: 
  Country: None (occurrence: None)
  Receive Date: 20101124
  Receipt Date: 20100723
  Transmission Date: 20110411
  Serious: Yes (Other)
  Sender: FDA-Public Use
  Company Number: US-PFIZER INC-2010086120

PATIENT
  Sex: Male
  Weight: 110 kg

DRUGS (11)
  1. TIKOSYN [Suspect]
     Indication: ATRIAL FIBRILLATION
     Dosage: 500 MCG, 2X/DAY
     Route: 048
     Dates: start: 20100705, end: 20100707
  2. TIKOSYN [Suspect]
     Dosage: 250 UG, 2X/DAY
     Route: 048
     Dates: start: 20100707
  3. METOPROLOL [Concomitant]
     Indication: HEART RATE IRREGULAR
     Dosage: 50 MG, DAILY
     Route: 048
  4. K-DUR [Concomitant]
     Dosage: 60 MEQ, DAILY
     Route: 048
  5. ACETYLSALICYLIC ACID [Concomitant]
     Dosage: 81 MG, DAILY
     Route: 048
  6. LASIX [Concomitant]
     Dosage: 40 MG, DAILY
     Route: 048
  7. MAGNESIUM OXIDE [Concomitant]
     Dosage: 400 MG, DAILY
     Route: 048
  8. OMACOR [Concomitant]
     Dosage: 1 G, 3X/DAY
  9. PROTONIX [Concomitant]
     Dosage: 40 MG, DAILY
     Route: 048
  10. ZOCOR [Concomitant]
     Dosage: 80 MG, DAILY
     Route: 048
  11. WARFARIN [Concomitant]
     Dosage: UNK

REACTIONS (4)
  - DIZZINESS [None]
  - ELECTROCARDIOGRAM QT PROLONGED [None]
  - HEADACHE [None]
  - HYPOAESTHESIA [None]
